FAERS Safety Report 25259219 (Version 1)
Quarter: 2025Q2

REPORT INFORMATION
  Report Type: Spontaneous
  Country: US (occurrence: None)
  Receive Date: 20250501
  Receipt Date: 20250501
  Transmission Date: 20250716
  Serious: Yes (Hospitalization)
  Sender: FDA-CTU
  Company Number: None

PATIENT
  Sex: Female

DRUGS (10)
  1. AMBRISENTAN [Suspect]
     Active Substance: AMBRISENTAN
     Indication: Pulmonary arterial hypertension
     Dosage: FREQUENCY : DAILY;?
     Route: 048
     Dates: start: 20210531
  2. D2000 ULTRA STRENGTH [Concomitant]
  3. ELIQUIS [Concomitant]
     Active Substance: APIXABAN
  4. IRON TAB [Concomitant]
  5. MUGINEX TAB 1200MG [Concomitant]
  6. MUGINEX TAB [Concomitant]
  7. NICOTINE DIS 7MG/24HR [Concomitant]
  8. PANTOPRAZOLE INJ SOD 40MG [Concomitant]
  9. TYLENOL TAB 500MG [Concomitant]
  10. VITAMIN D [Concomitant]
     Active Substance: VITAMIN D NOS

REACTIONS (1)
  - Hospitalisation [None]
